FAERS Safety Report 9288738 (Version 1)
Quarter: 2013Q2

REPORT INFORMATION
  Report Type: Spontaneous
  Country: US (occurrence: None)
  Receive Date: 20130513
  Receipt Date: 20130513
  Transmission Date: 20140414
  Serious: Yes (Other)
  Sender: FDA-Public Use
  Company Number: None

PATIENT
  Age: 69 Year
  Sex: Female
  Weight: 68.04 kg

DRUGS (1)
  1. FEXOFENADINE HCL [Suspect]
     Indication: ALLERGIC SINUSITIS
     Dosage: 2 YEARS 25 DAYS
     Route: 048
     Dates: start: 20110301, end: 20130325

REACTIONS (4)
  - Rash [None]
  - Pruritus [None]
  - Pruritus [None]
  - Pruritus [None]
